FAERS Safety Report 21544319 (Version 1)
Quarter: 2022Q4

REPORT INFORMATION
  Report Type: Spontaneous
  Country: US (occurrence: US)
  Receive Date: 20221102
  Receipt Date: 20221102
  Transmission Date: 20230113
  Serious: No
  Sender: FDA-Public Use
  Company Number: US-MYOVANT SCIENCES GMBH-2022MYSCI0800299

PATIENT
  Age: 84 Year
  Sex: Male

DRUGS (1)
  1. ORGOVYX [Suspect]
     Active Substance: RELUGOLIX
     Indication: Prostate cancer
     Dosage: 120 MILLIGRAM, QD
     Route: 048

REACTIONS (2)
  - Therapy interrupted [Not Recovered/Not Resolved]
  - Product distribution issue [Not Recovered/Not Resolved]

NARRATIVE: CASE EVENT DATE: 20220807
